FAERS Safety Report 12962206 (Version 1)
Quarter: 2016Q4

REPORT INFORMATION
  Report Type: Report from Study
  Country: US (occurrence: US)
  Receive Date: 20161121
  Receipt Date: 20161121
  Transmission Date: 20170207
  Serious: Yes (Other)
  Sender: FDA-Public Use
  Company Number: US-GILEAD-2016-0244000

PATIENT
  Age: 49 Year
  Sex: Female

DRUGS (1)
  1. LEDIPASVIR/SOFOSBUVIR [Suspect]
     Active Substance: LEDIPASVIR\SOFOSBUVIR
     Indication: CHRONIC HEPATITIS C
     Dosage: 1 DF, QD
     Route: 048
     Dates: start: 20160415, end: 20160708

REACTIONS (15)
  - Hypoaesthesia [Unknown]
  - Pruritus generalised [Unknown]
  - Hepatic cirrhosis [Unknown]
  - Psoriasis [Unknown]
  - Alopecia [Unknown]
  - Nail growth abnormal [Unknown]
  - Hair growth abnormal [Unknown]
  - Dry skin [Unknown]
  - Headache [Unknown]
  - Paraesthesia [Unknown]
  - Hyperaesthesia [Unknown]
  - Weight decreased [Unknown]
  - Dyskinesia [Unknown]
  - Skin ulcer [Unknown]
  - Fatigue [Unknown]
